FAERS Safety Report 15884567 (Version 3)
Quarter: 2019Q1

REPORT INFORMATION
  Report Type: Spontaneous
  Country: DE (occurrence: DE)
  Receive Date: 20190129
  Receipt Date: 20190208
  Transmission Date: 20190417
  Serious: Yes (Congenital Anomaly, Other)
  Sender: FDA-Public Use
  Company Number: DE-MYLANLABS-2019M1007423

PATIENT
  Age: 1 Day
  Sex: Female
  Weight: 3.5 kg

DRUGS (3)
  1. SEROQUEL [Suspect]
     Active Substance: QUETIAPINE FUMARATE
     Indication: DEPRESSION
     Dosage: 400 MILLIGRAM, QD (400 [MG/D ]/ RETARD)
     Route: 064
     Dates: start: 20170430, end: 20180206
  2. CITALOPRAM [Suspect]
     Active Substance: CITALOPRAM HYDROBROMIDE
     Indication: DEPRESSION
     Dosage: 40 MILLIGRAM, QD (40 [MG/D ])
     Route: 064
     Dates: start: 20170430, end: 20180206
  3. TRIMIPRAMINE [Suspect]
     Active Substance: TRIMIPRAMINE
     Indication: DEPRESSION
     Dosage: 100 MILLIGRAM, QD (100 [MG/D ])
     Route: 064
     Dates: start: 20170430, end: 20180206

REACTIONS (4)
  - Atrial septal defect [Unknown]
  - Patent ductus arteriosus [Unknown]
  - Ventricular septal defect [Unknown]
  - Foetal exposure during pregnancy [Recovered/Resolved]

NARRATIVE: CASE EVENT DATE: 20180206
